FAERS Safety Report 7365103-0 (Version None)
Quarter: 2011Q1

REPORT INFORMATION
  Report Type: 
  Country: None (occurrence: None)
  Receive Date: 20110321
  Receipt Date: 20110316
  Transmission Date: 20110831
  Serious: Yes (Other)
  Sender: FDA-Public Use
  Company Number: US-PFIZER INC-2010068635

PATIENT
  Sex: Female

DRUGS (3)
  1. PAXIL [Suspect]
     Dosage: UNK
     Dates: start: 20000101
  2. SYNTHROID [Concomitant]
     Dosage: UNK
  3. ZOLOFT [Suspect]
     Dosage: UNK

REACTIONS (7)
  - SENSATION OF FOREIGN BODY [None]
  - FEAR OF DISEASE [None]
  - EMOTIONAL DISTRESS [None]
  - FEELING ABNORMAL [None]
  - THYROID CANCER [None]
  - STRESS [None]
  - THYROID FUNCTION TEST ABNORMAL [None]
